FAERS Safety Report 26129403 (Version 1)
Quarter: 2025Q4

REPORT INFORMATION
  Report Type: Spontaneous
  Country: CN (occurrence: CN)
  Receive Date: 20251208
  Receipt Date: 20251208
  Transmission Date: 20260117
  Serious: Yes (Death, Life-Threatening, Other)
  Sender: ROCHE
  Company Number: CN-ROCHE-10000452640

PATIENT
  Age: 9 Year
  Sex: Male

DRUGS (1)
  1. XOFLUZA [Suspect]
     Active Substance: BALOXAVIR MARBOXIL
     Indication: H1N1 influenza
     Route: 065

REACTIONS (4)
  - Hyperpyrexia [Unknown]
  - Off label use [Fatal]
  - Encephalitis influenzal [Unknown]
  - Brain herniation [Fatal]

NARRATIVE: CASE EVENT DATE: 20250501
